FAERS Safety Report 9630801 (Version 2)
Quarter: 2013Q4

REPORT INFORMATION
  Report Type: Report from Study
  Country: CA (occurrence: CA)
  Receive Date: 20131018
  Receipt Date: 20131029
  Transmission Date: 20140711
  Serious: Yes (Other)
  Sender: FDA-Public Use
  Company Number: CA-JNJFOC-20131008899

PATIENT
  Sex: Female
  Weight: 89.81 kg

DRUGS (1)
  1. REMICADE [Suspect]
     Indication: BEHCET^S SYNDROME
     Route: 042

REACTIONS (2)
  - Hip fracture [Unknown]
  - Off label use [Unknown]
